FAERS Safety Report 9252034 (Version 2)
Quarter: 2013Q2

REPORT INFORMATION
  Report Type: Spontaneous
  Country: US (occurrence: US)
  Receive Date: 20130424
  Receipt Date: 20130503
  Transmission Date: 20140414
  Serious: Yes (Hospitalization, Other)
  Sender: FDA-Public Use
  Company Number: US-ROCHE-1213427

PATIENT
  Age: 87 Year
  Sex: Female
  Weight: 155 kg

DRUGS (6)
  1. RITUXAN [Suspect]
     Indication: CHRONIC INFLAMMATORY DEMYELINATING POLYRADICULONEUROPATHY
     Route: 042
     Dates: start: 2011
  2. RITUXAN [Suspect]
     Route: 042
     Dates: start: 20130326, end: 20130326
  3. RITUXAN [Suspect]
     Route: 065
     Dates: start: 20130328
  4. IGG [Concomitant]
  5. L-THYROXINE [Concomitant]
     Indication: HYPOTHYROIDISM
     Route: 048
     Dates: start: 2007
  6. SIMVASTATIN [Concomitant]
     Indication: HYPERCHOLESTEROLAEMIA
     Route: 048
     Dates: start: 2007

REACTIONS (7)
  - Progressive multifocal leukoencephalopathy [Unknown]
  - Aphasia [Unknown]
  - Hemiparesis [Recovering/Resolving]
  - Demyelination [Unknown]
  - Speech disorder [Recovering/Resolving]
  - Convulsion [Recovered/Resolved]
  - Hypothyroidism [Unknown]
